FAERS Safety Report 7010456-6 (Version None)
Quarter: 2010Q3

REPORT INFORMATION
  Report Type: 
  Country: None (occurrence: None)
  Receive Date: 20100923
  Receipt Date: 20100915
  Transmission Date: 20110219
  Serious: Yes (Other)
  Sender: FDA-Public Use
  Company Number: BR-ABBOTT-10P-020-0664571-00

PATIENT
  Sex: Female
  Weight: 67 kg

DRUGS (6)
  1. HUMIRA [Suspect]
     Indication: RHEUMATOID ARTHRITIS
     Route: 058
     Dates: start: 20100301, end: 20100701
  2. ARAVA [Concomitant]
     Indication: RHEUMATOID ARTHRITIS
     Route: 048
  3. MELOXICAM 10MG, PREDNISONE 4MG, FAMOTIDINE20MG, CHLOROQUINE DIPHOSPHAT [Concomitant]
     Indication: BONE DISORDER
     Route: 048
  4. CALCIUM BICARBONATE [Concomitant]
     Indication: BONE DISORDER
     Route: 048
     Dates: start: 20060101
  5. SODIUM ALENDRONATE [Concomitant]
     Indication: BONE DISORDER
     Route: 048
     Dates: start: 20060101
  6. EUTHYROX [Concomitant]
     Indication: PRODUCT USED FOR UNKNOWN INDICATION
     Route: 048
     Dates: start: 20070101

REACTIONS (1)
  - TENDON RUPTURE [None]
